FAERS Safety Report 4803454-1 (Version None)
Quarter: 2005Q4

REPORT INFORMATION
  Report Type: 
  Country: None (occurrence: None)
  Receive Date: 20051014
  Receipt Date: 20030916
  Transmission Date: 20060501
  Serious: Yes (Other)
  Sender: FDA-Public Use
  Company Number: 2002104141US

PATIENT
  Age: 25 Year
  Sex: Female
  Weight: 90.2658 kg

DRUGS (2)
  1. EXEMESTANE [Suspect]
     Indication: ENDOMETRIOSIS
     Dosage: 100 MG (100 MG DAILY) ORAL
     Route: 048
     Dates: start: 20020325, end: 20020426
  2. CLARITIN [Concomitant]

REACTIONS (6)
  - ANGIONEUROTIC OEDEMA [None]
  - CHEST DISCOMFORT [None]
  - FACE OEDEMA [None]
  - HYPERSENSITIVITY [None]
  - OBSTRUCTIVE AIRWAYS DISORDER [None]
  - THROAT TIGHTNESS [None]
